FAERS Safety Report 7707053-3 (Version None)
Quarter: 2011Q3

REPORT INFORMATION
  Report Type: 
  Country: None (occurrence: None)
  Receive Date: 20110819
  Receipt Date: 20110804
  Transmission Date: 20111222
  Serious: Yes (Other)
  Sender: FDA-Public Use
  Company Number: RU-1186638

PATIENT
  Age: 71 Year
  Sex: Female

DRUGS (2)
  1. TRAVATAN [Suspect]
     Indication: OPEN ANGLE GLAUCOMA
     Dosage: OPHTHALMIC
     Route: 047
     Dates: start: 20110602
  2. BETOPTIC [Suspect]
     Indication: OPEN ANGLE GLAUCOMA
     Dosage: 1 GTT BID, OPHTHALMIC
     Route: 047
     Dates: start: 20110301, end: 20110602

REACTIONS (6)
  - CORNEAL OEDEMA [None]
  - EYE IRRITATION [None]
  - WRONG DRUG ADMINISTERED [None]
  - CORNEAL EPITHELIUM DEFECT [None]
  - OCULAR DISCOMFORT [None]
  - VISUAL ACUITY REDUCED [None]
